FAERS Safety Report 6966788-0 (Version None)
Quarter: 2010Q3

REPORT INFORMATION
  Report Type: 
  Country: None (occurrence: None)
  Receive Date: 20100906
  Receipt Date: 20100823
  Transmission Date: 20110219
  Serious: Yes (Hospitalization, Other)
  Sender: FDA-Public Use
  Company Number: PHFR2010GB02478

PATIENT
  Sex: Female

DRUGS (4)
  1. CLOZARIL [Suspect]
     Indication: SCHIZOPHRENIA
     Dosage: UNK
     Route: 048
     Dates: start: 20060406
  2. CLOZARIL [Suspect]
     Dosage: 1300MG
  3. AMISULPRIDE [Suspect]
     Dosage: 1200MG
  4. LITHIUM [Suspect]
     Dosage: 3000MG

REACTIONS (2)
  - HALLUCINATION, VISUAL [None]
  - OVERDOSE [None]
